FAERS Safety Report 23895915 (Version 1)
Quarter: 2024Q2

REPORT INFORMATION
  Report Type: Report from Study
  Country: GB (occurrence: GB)
  Receive Date: 20240524
  Receipt Date: 20240524
  Transmission Date: 20240715
  Serious: Yes (Other)
  Sender: FDA-Public Use
  Company Number: GB-SA-SAC20220921000385

PATIENT
  Age: 55 Year
  Sex: Male

DRUGS (1)
  1. DUPILUMAB [Suspect]
     Active Substance: DUPILUMAB
     Indication: Dermatitis atopic
     Dosage: 300 MG, QOW
     Route: 058
     Dates: start: 202111

REACTIONS (13)
  - Lower respiratory tract infection [Unknown]
  - Eye discharge [Unknown]
  - Dry eye [Unknown]
  - Mass [Recovered/Resolved]
  - Dermatitis atopic [Unknown]
  - Injection site pain [Unknown]
  - Herpes zoster [Unknown]
  - Pruritus [Unknown]
  - Eye pain [Unknown]
  - Therapeutic response shortened [Unknown]
  - Product preparation error [Unknown]
  - Incorrect dose administered [Unknown]
  - Wrong technique in product usage process [Unknown]

NARRATIVE: CASE EVENT DATE: 20220701
